FAERS Safety Report 4339345-2 (Version None)
Quarter: 2004Q2

REPORT INFORMATION
  Report Type: 
  Country: None (occurrence: None)
  Receive Date: 20040414
  Receipt Date: 20040414
  Transmission Date: 20050107
  Serious: Yes (Life-Threatening, Other)
  Sender: FDA-Public Use
  Company Number: None

PATIENT
  Age: 44 Year
  Sex: Female
  Weight: 77.1115 kg

DRUGS (3)
  1. PAXIL [Suspect]
     Indication: ANXIETY
     Dosage: 1/4 PILL TWICE ORAL
     Route: 048
     Dates: start: 19970612, end: 19970613
  2. PAXIL [Suspect]
     Indication: DEPRESSION
     Dosage: 1/4 PILL TWICE ORAL
     Route: 048
     Dates: start: 19970612, end: 19970613
  3. PAXIL [Suspect]
     Indication: OBSESSIVE-COMPULSIVE DISORDER
     Dosage: 1/4 PILL TWICE ORAL
     Route: 048
     Dates: start: 19970612, end: 19970613

REACTIONS (21)
  - ANGER [None]
  - BALANCE DISORDER [None]
  - DISCOMFORT [None]
  - DRUG WITHDRAWAL SYNDROME [None]
  - DYSPNOEA [None]
  - EUPHORIC MOOD [None]
  - FEELING ABNORMAL [None]
  - FEELING OF DESPAIR [None]
  - FOOD ALLERGY [None]
  - HEART RATE INCREASED [None]
  - HYPOAESTHESIA [None]
  - INAPPROPRIATE AFFECT [None]
  - INFLUENZA LIKE ILLNESS [None]
  - LYMPHADENOPATHY [None]
  - PARANOIA [None]
  - PHARYNGEAL OEDEMA [None]
  - PSYCHIATRIC SYMPTOM [None]
  - PYREXIA [None]
  - SUICIDAL IDEATION [None]
  - SWOLLEN TONGUE [None]
  - TONGUE DISCOLOURATION [None]
